FAERS Safety Report 14166676 (Version 1)
Quarter: 2017Q4

REPORT INFORMATION
  Report Type: Spontaneous
  Country: CN (occurrence: CN)
  Receive Date: 20171107
  Receipt Date: 20171107
  Transmission Date: 20180321
  Serious: Yes (Life-Threatening, Other)
  Sender: FDA-Public Use
  Company Number: CN-CIPLA LTD.-2017CN19198

PATIENT

DRUGS (3)
  1. IFOSFAMIDE. [Suspect]
     Active Substance: IFOSFAMIDE
     Indication: PANCREATIC NEUROENDOCRINE TUMOUR
     Dosage: 6 G, FOR 9 6 HOURS ON DAYS 1 TO 4 . 21-DAY CYCLES
     Route: 042
  2. ENDOSTAR [Suspect]
     Active Substance: ENDOSTATIN
     Indication: PANCREATIC NEUROENDOCRINE TUMOUR
     Dosage: 15 MG, (EVERY DAY FROM DAY 1 TO 14)
     Route: 042
  3. EPIRUBICIN [Suspect]
     Active Substance: EPIRUBICIN
     Indication: PANCREATIC NEUROENDOCRINE TUMOUR
     Dosage: 80 MG, ON DAY 01 (21 DAY CYCLES)
     Route: 042

REACTIONS (2)
  - Gastrointestinal disorder [Unknown]
  - Bone marrow failure [Unknown]
